FAERS Safety Report 7558846-7 (Version None)
Quarter: 2011Q2

REPORT INFORMATION
  Report Type: 
  Country: None (occurrence: None)
  Receive Date: 20110613
  Receipt Date: 20110527
  Transmission Date: 20111010
  Serious: Yes (Death)
  Sender: FDA-Public Use
  Company Number: 2011060070

PATIENT
  Age: 78 Year
  Sex: Female

DRUGS (14)
  1. TORSEMIDE [Suspect]
     Indication: RENAL FAILURE CHRONIC
     Dosage: 50 MG (50 MG, 1 IN 1 D), ORAL
     Route: 048
  2. CELLUFLUD (CARMELLOSE SODIUM) [Concomitant]
  3. ATORVASTATIN CALCIUM [Suspect]
     Dosage: 40 MG (40 MG, 1 IN 1 D),ORAL; LONG TERM
     Route: 048
  4. MORPHINE SULFATE [Concomitant]
  5. MARCUMAR [Suspect]
     Indication: CARDIAC FIBRILLATION
     Dosage: 1 DOSAGE FORM, AS REQUIRED, ORAL
     Route: 048
     Dates: start: 20070101, end: 20090403
  6. MARCUMAR [Suspect]
     Indication: ATRIAL FLUTTER
     Dosage: 1 DOSAGE FORM, AS REQUIRED, ORAL
     Route: 048
     Dates: start: 20070101, end: 20090403
  7. MARCUMAR [Suspect]
     Indication: ANTICOAGULANT THERAPY
     Dosage: 1 DOSAGE FORM, AS REQUIRED, ORAL
     Route: 048
     Dates: start: 20070101, end: 20090403
  8. DAFALGAN (PARAETAMOL) [Concomitant]
  9. PREDNISONE [Suspect]
     Indication: OSTEOARTHRITIS
     Dosage: 10 MG (10 MG, 1 IN 1 D), ORAL
     Route: 048
     Dates: start: 20090101
  10. AMLODIPINE [Suspect]
     Indication: ESSENTIAL HYPERTENSION
     Dosage: 5 MG (5 MG, 1 IN 1 D),ORAL
     Route: 048
  11. ALDACTONE [Suspect]
     Indication: ESSENTIAL HYPERTENSION
     Dosage: 25 MG (25 MG, 1 IN 1 D), ORAL
     Route: 048
     Dates: start: 20080101, end: 20090406
  12. FRAGMIN [Concomitant]
  13. NOVALGIN (METAMIZOLE SODIUM) [Suspect]
     Indication: PAIN
     Dosage: 2000 MG (500 MG, 4 IN 1 D), ORAL
     Route: 048
     Dates: end: 20090406
  14. BISOPROLOL FUMARATE [Concomitant]

REACTIONS (7)
  - HAEMORRHAGIC ANAEMIA [None]
  - DRUG INTERACTION [None]
  - RENAL FAILURE ACUTE [None]
  - CARDIAC FAILURE ACUTE [None]
  - ANGINA PECTORIS [None]
  - GASTROINTESTINAL HAEMORRHAGE [None]
  - PULMONARY EMBOLISM [None]
